FAERS Safety Report 24672871 (Version 1)
Quarter: 2024Q4

REPORT INFORMATION
  Report Type: Spontaneous
  Country: US (occurrence: US)
  Receive Date: 20241128
  Receipt Date: 20241128
  Transmission Date: 20250114
  Serious: Yes (Hospitalization)
  Sender: EMCURE PHARMACEUTICALS LTD
  Company Number: US-AVET LIFESCIENCES LTD-2024-AVET-000431

PATIENT
  Age: 11 Year
  Sex: Male

DRUGS (5)
  1. FLUOXETINE [Suspect]
     Active Substance: FLUOXETINE HYDROCHLORIDE
     Indication: Obsessive-compulsive disorder
     Dosage: 10 MILLIGRAM, QD EVERY MORNING
     Route: 048
  2. ATOMOXETINE [Suspect]
     Active Substance: ATOMOXETINE HYDROCHLORIDE
     Indication: Attention deficit hyperactivity disorder
     Dosage: 40 MILLIGRAM, QD EVERY MORNING
     Route: 048
     Dates: start: 202002
  3. ATOMOXETINE [Suspect]
     Active Substance: ATOMOXETINE HYDROCHLORIDE
     Dosage: 25 MILLIGRAM, QD EVERY MORNING
     Route: 048
  4. ATOMOXETINE [Suspect]
     Active Substance: ATOMOXETINE HYDROCHLORIDE
     Dosage: 10 MILLIGRAM, QD EVERY MORNING
     Route: 048
     Dates: start: 201912
  5. LORAZEPAM [Suspect]
     Active Substance: LORAZEPAM
     Indication: Obsessive-compulsive disorder
     Dosage: 0.5 MILLIGRAM, DAILY
     Route: 048

REACTIONS (1)
  - Condition aggravated [Recovering/Resolving]
